FAERS Safety Report 10731487 (Version 1)
Quarter: 2015Q1

REPORT INFORMATION
  Report Type: Spontaneous
  Country: DE (occurrence: DE)
  Receive Date: 20150123
  Receipt Date: 20150123
  Transmission Date: 20150721
  Serious: Yes (Congenital Anomaly)
  Sender: FDA-Public Use
  Company Number: PHHY2015DE008256

PATIENT
  Sex: Male

DRUGS (1)
  1. METHOTREXATE [Suspect]
     Active Substance: METHOTREXATE
     Indication: RHEUMATOID ARTHRITIS
     Dosage: (MATERNAL EXPOSURE PRIOR TO PREGNANCY: 12.5 MG QW)
     Route: 050

REACTIONS (4)
  - Accessory auricle [Unknown]
  - Kidney malformation [Unknown]
  - Maternal exposure before pregnancy [Unknown]
  - Vesicoureteric reflux [Unknown]
